FAERS Safety Report 8178756-4 (Version None)
Quarter: 2012Q1

REPORT INFORMATION
  Report Type: 
  Country: None (occurrence: None)
  Receive Date: 20120301
  Receipt Date: 20120301
  Transmission Date: 20120608
  Serious: Yes (Hospitalization)
  Sender: FDA-Public Use
  Company Number: None

PATIENT
  Age: 71 Year
  Sex: Male
  Weight: 118.84 kg

DRUGS (1)
  1. NUCYNTA [Suspect]
     Indication: PAIN
     Dosage: ???
     Dates: start: 20111111, end: 20111114

REACTIONS (3)
  - COMA [None]
  - HALLUCINATION, AUDITORY [None]
  - NIGHTMARE [None]
